FAERS Safety Report 17804908 (Version 1)
Quarter: 2020Q2

REPORT INFORMATION
  Report Type: Spontaneous
  Country: FR (occurrence: FR)
  Receive Date: 20200519
  Receipt Date: 20200519
  Transmission Date: 20200714
  Serious: Yes (Other)
  Sender: FDA-Public Use
  Company Number: FR-PFIZER INC-2020196604

PATIENT
  Age: 64 Year
  Sex: Male
  Weight: 115 kg

DRUGS (8)
  1. XANAX [Concomitant]
     Active Substance: ALPRAZOLAM
     Dosage: 0.75 MG, DAILY
     Route: 048
  2. DEPAKINE [VALPROIC ACID] [Concomitant]
     Active Substance: VALPROIC ACID
     Dosage: 1000 MG, DAILY
     Route: 048
  3. AERIUS (DESLORATADINE) [Concomitant]
     Active Substance: DESLORATADINE
     Dosage: 5 MG, DAILY
     Route: 048
  4. PLAQUENIL [Interacting]
     Active Substance: HYDROXYCHLOROQUINE SULFATE
     Dosage: 200 MG, 2X/DAY (EVERY 12H)
     Route: 048
     Dates: start: 20200318, end: 20200323
  5. PAROXETINE. [Concomitant]
     Active Substance: PAROXETINE
     Dosage: 30 MG, DAILY
     Route: 048
  6. AZITHROMYCIN ANHYDROUS. [Suspect]
     Active Substance: AZITHROMYCIN ANHYDROUS
     Indication: CORONAVIRUS INFECTION
     Dosage: 500 MG, DAILY
     Route: 048
     Dates: start: 20200318, end: 20200323
  7. TERCIAN [CYAMEMAZINE TARTRATE] [Interacting]
     Active Substance: CYAMEMAZINE
     Dosage: 25 MG, DAILY
     Route: 048
  8. PLAQUENIL [Interacting]
     Active Substance: HYDROXYCHLOROQUINE SULFATE
     Indication: CORONAVIRUS INFECTION
     Dosage: 200 MG, DAILY
     Route: 048
     Dates: start: 20200323, end: 20200327

REACTIONS (4)
  - Drug interaction [Recovered/Resolved]
  - Product use in unapproved indication [Unknown]
  - Off label use [Unknown]
  - Electrocardiogram QT prolonged [Recovered/Resolved]

NARRATIVE: CASE EVENT DATE: 20200318
